FAERS Safety Report 16545828 (Version 2)
Quarter: 2019Q3

REPORT INFORMATION
  Report Type: Spontaneous
  Country: JP (occurrence: JP)
  Receive Date: 20190709
  Receipt Date: 20190712
  Transmission Date: 20191004
  Serious: Yes (Other)
  Sender: FDA-Public Use
  Company Number: JP-PFIZER INC-2019281725

PATIENT
  Age: 84 Year
  Sex: Female
  Weight: 56 kg

DRUGS (8)
  1. FAMOTIDINE. [Concomitant]
     Active Substance: FAMOTIDINE
     Dosage: 10, 1X/DAY
     Dates: start: 20170616
  2. MAGNESIUM OXIDE. [Concomitant]
     Active Substance: MAGNESIUM OXIDE
     Dosage: 330 UNK, 2X/DAY
     Dates: start: 20170728
  3. EDIROL [Concomitant]
     Active Substance: ELDECALCITOL
     Dosage: 0.5, 1X/DAY
     Dates: start: 20171226
  4. TELMISARTAN. [Concomitant]
     Active Substance: TELMISARTAN
     Dosage: 20 ONCE DAILY
  5. SARPOGRELATE [Suspect]
     Active Substance: SARPOGRELATE
     Indication: PERIPHERAL ARTERIAL OCCLUSIVE DISEASE
     Dosage: 100 MG, 2X/DAY
     Route: 048
     Dates: start: 20190326
  6. TOVIAZ [Suspect]
     Active Substance: FESOTERODINE FUMARATE
     Indication: POLLAKIURIA
     Dosage: 4 MG, 1X/DAY
     Route: 048
     Dates: start: 20190518
  7. CLOPIDOGREL [Concomitant]
     Active Substance: CLOPIDOGREL BISULFATE
     Dosage: 75, 1X/DAY
  8. SEIBULE [Concomitant]
     Active Substance: MIGLITOL
     Dosage: 50 UNK, 3X/DAY
     Dates: start: 20180622

REACTIONS (4)
  - Oropharyngeal pain [Unknown]
  - Paraesthesia [Recovering/Resolving]
  - Pharyngitis [Recovered/Resolved]
  - Foreign body in respiratory tract [Unknown]

NARRATIVE: CASE EVENT DATE: 20190630
